FAERS Safety Report 7892332-X (Version None)
Quarter: 2011Q4

REPORT INFORMATION
  Report Type: 
  Country: None (occurrence: None)
  Receive Date: 20111104
  Receipt Date: 20111021
  Transmission Date: 20120403
  Serious: Yes (Other)
  Sender: FDA-Public Use
  Company Number: BR-RANBAXY-2011R5-49961

PATIENT

DRUGS (2)
  1. LORATADINE [Suspect]
     Indication: SINUSITIS
     Dosage: 10 MG, UNK
     Route: 048
     Dates: start: 20110601
  2. LORATADINE [Suspect]
     Indication: RHINITIS

REACTIONS (3)
  - NAUSEA [None]
  - ABDOMINAL PAIN UPPER [None]
  - DYSPNOEA [None]
